FAERS Safety Report 15044007 (Version 2)
Quarter: 2018Q2

REPORT INFORMATION
  Report Type: Spontaneous
  Country: US (occurrence: US)
  Receive Date: 20180621
  Receipt Date: 20180626
  Transmission Date: 20180711
  Serious: Yes (Hospitalization, Other)
  Sender: FDA-Public Use
  Company Number: US-GLAXOSMITHKLINE-US2018GSK110173

PATIENT
  Sex: Male

DRUGS (6)
  1. ADCIRCA [Concomitant]
     Active Substance: TADALAFIL
  2. COUMADIN [Concomitant]
     Active Substance: WARFARIN SODIUM
  3. FLOLAN [Suspect]
     Active Substance: EPOPROSTENOL SODIUM
     Indication: PULMONARY ARTERIAL HYPERTENSION
     Dosage: 53.7 DF, CO
     Route: 042
     Dates: start: 20020711
  4. FELODIPINE. [Concomitant]
     Active Substance: FELODIPINE
  5. FLOLAN [Suspect]
     Active Substance: EPOPROSTENOL SODIUM
     Indication: PULMONARY ARTERIAL HYPERTENSION
  6. OPSUMIT [Concomitant]
     Active Substance: MACITENTAN

REACTIONS (3)
  - Catheterisation cardiac [Unknown]
  - Cardiac failure [Unknown]
  - Fluid retention [Unknown]
